FAERS Safety Report 23483344 (Version 1)
Quarter: 2024Q1

REPORT INFORMATION
  Report Type: Spontaneous
  Country: FR (occurrence: FR)
  Receive Date: 20240205
  Receipt Date: 20240205
  Transmission Date: 20240410
  Serious: Yes (Death)
  Sender: FDA-Public Use
  Company Number: None

PATIENT
  Age: 76 Year
  Sex: Male
  Weight: 65 kg

DRUGS (14)
  1. CARBOPLATIN [Suspect]
     Active Substance: CARBOPLATIN
     Indication: Cholangiocarcinoma
     Dosage: CYCLE 1, DAY 1
     Route: 042
     Dates: start: 20231218, end: 20231218
  2. CARBOPLATIN [Suspect]
     Active Substance: CARBOPLATIN
     Dosage: CYCLE 1, DAY 8
     Route: 042
     Dates: start: 20231226, end: 20231226
  3. GEMCITABINE HYDROCHLORIDE [Suspect]
     Active Substance: GEMCITABINE HYDROCHLORIDE
     Indication: Cholangiocarcinoma
     Dosage: CYCLE 1, DAY 1
     Route: 042
     Dates: start: 20231218, end: 20231218
  4. GEMCITABINE HYDROCHLORIDE [Suspect]
     Active Substance: GEMCITABINE HYDROCHLORIDE
     Dosage: CYCLE 1, DAY 8
     Route: 042
     Dates: start: 20231226, end: 20231226
  5. IMFINZI [Suspect]
     Active Substance: DURVALUMAB
     Indication: Cholangiocarcinoma
     Dosage: C1J1
     Route: 042
     Dates: start: 20231218, end: 20231218
  6. FEBUXOSTAT [Concomitant]
     Active Substance: FEBUXOSTAT
     Dosage: 80 MG, 1X/DAY
  7. APREPITANT [Concomitant]
     Active Substance: APREPITANT
     Dosage: UNK
  8. KARDEGIC [Concomitant]
     Active Substance: ASPIRIN DL-LYSINE
     Dosage: 75 MG, 1X/DAY
  9. OXYCONTIN [Concomitant]
     Active Substance: OXYCODONE HYDROCHLORIDE
     Dosage: 60 MG, 1X/DAY
  10. LISINOPRIL [Concomitant]
     Active Substance: LISINOPRIL
     Dosage: 10 MG, 1X/DAY
  11. ATORVASTATIN CALCIUM [Concomitant]
     Active Substance: ATORVASTATIN CALCIUM
     Dosage: 10 MG, 1X/DAY
  12. OXYCODONE HYDROCHLORIDE [Concomitant]
     Active Substance: OXYCODONE HYDROCHLORIDE
     Dosage: 10 MG, AS NEEDED
  13. FUROSEMIDE [Concomitant]
     Active Substance: FUROSEMIDE
     Dosage: 40 MG, 1X/DAY
  14. CARVEDILOL [Concomitant]
     Active Substance: CARVEDILOL
     Dosage: 25 MG, 1X/DAY

REACTIONS (4)
  - Agranulocytosis [Fatal]
  - Colitis [Fatal]
  - Multiple organ dysfunction syndrome [Fatal]
  - Off label use [Unknown]

NARRATIVE: CASE EVENT DATE: 20231218
